FAERS Safety Report 7183083-8 (Version None)
Quarter: 2010Q4

REPORT INFORMATION
  Report Type: 
  Country: None (occurrence: None)
  Receive Date: 20101222
  Receipt Date: 20100901
  Transmission Date: 20110411
  Serious: No
  Sender: FDA-Public Use
  Company Number: A0878943A

PATIENT
  Age: 58 Year
  Sex: Female

DRUGS (3)
  1. RYTHMOL [Suspect]
     Dosage: 225MG THREE TIMES PER DAY
     Route: 048
  2. COUMADIN [Concomitant]
  3. UNKNOWN MEDICATION [Concomitant]

REACTIONS (2)
  - DECREASED APPETITE [None]
  - FATIGUE [None]
